FAERS Safety Report 15966085 (Version 3)
Quarter: 2019Q1

REPORT INFORMATION
  Report Type: Report from Study
  Country: US (occurrence: US)
  Receive Date: 20190215
  Receipt Date: 20190308
  Transmission Date: 20190418
  Serious: Yes (Other)
  Sender: FDA-Public Use
  Company Number: US-TESAROUBC-2019-TSO00883-US

PATIENT
  Age: 59 Year
  Sex: Female
  Weight: 57.46 kg

DRUGS (3)
  1. OXYCODONE [Concomitant]
     Active Substance: OXYCODONE
     Indication: PRODUCT USED FOR UNKNOWN INDICATION
     Dosage: UNK
  2. ZEJULA [Suspect]
     Active Substance: NIRAPARIB
     Indication: UTERINE CANCER
     Dosage: 200 MG, QPM WITHOUT FOOD
     Route: 048
     Dates: start: 20190206
  3. ZOFRAN [Concomitant]
     Active Substance: ONDANSETRON HYDROCHLORIDE
     Indication: PRODUCT USED FOR UNKNOWN INDICATION
     Dosage: UNK

REACTIONS (19)
  - Abdominal discomfort [Unknown]
  - Mood altered [Unknown]
  - Headache [Unknown]
  - Haemoglobin decreased [Unknown]
  - Hypertension [Unknown]
  - Feeling abnormal [Recovering/Resolving]
  - Platelet disorder [Unknown]
  - Stomatitis [Unknown]
  - Product use in unapproved indication [Unknown]
  - Thrombosis [Unknown]
  - Malignant neoplasm progression [Unknown]
  - Blood chloride decreased [Unknown]
  - Back pain [Not Recovered/Not Resolved]
  - Tearfulness [Recovered/Resolved]
  - Weight decreased [Unknown]
  - Anxiety [Unknown]
  - Fatigue [Unknown]
  - Spinal pain [Unknown]
  - Blood potassium decreased [Unknown]

NARRATIVE: CASE EVENT DATE: 201902
